FAERS Safety Report 19019290 (Version 1)
Quarter: 2021Q1

REPORT INFORMATION
  Report Type: Report from Study
  Country: US (occurrence: US)
  Receive Date: 20210316
  Receipt Date: 20210316
  Transmission Date: 20210420
  Serious: Yes (Death)
  Sender: FDA-Public Use
  Company Number: US-TEVA-2021-US-1881946

PATIENT
  Sex: Female

DRUGS (2)
  1. CLARAVIS [Suspect]
     Active Substance: ISOTRETINOIN
     Indication: MILIA
  2. CLARAVIS [Suspect]
     Active Substance: ISOTRETINOIN
     Indication: DERMATITIS ACNEIFORM
     Dosage: 5 MILLIGRAM DAILY; 10 MG EVERY TWO DAYS
     Route: 065

REACTIONS (5)
  - Self esteem decreased [Unknown]
  - Emotional distress [Unknown]
  - Off label use [Unknown]
  - Depressed mood [Unknown]
  - Completed suicide [Fatal]
